FAERS Safety Report 9577061 (Version 1)
Quarter: 2013Q4

REPORT INFORMATION
  Report Type: Spontaneous
  Country: US (occurrence: US)
  Receive Date: 20131001
  Receipt Date: 20131001
  Transmission Date: 20140711
  Serious: No
  Sender: FDA-Public Use
  Company Number: US-AMGEN-USASP2013005507

PATIENT
  Age: 66 Year
  Sex: Female
  Weight: 90.7 kg

DRUGS (13)
  1. ENBREL [Suspect]
     Indication: PRODUCT USED FOR UNKNOWN INDICATION
     Dosage: 50 MG, 2 TIMES/WK
     Route: 058
  2. FOSAMAX [Concomitant]
     Dosage: 70 MG, UNK
  3. JANUMET [Concomitant]
     Dosage: 50-1000, UNK
  4. SIMCOR                             /00848101/ [Concomitant]
     Dosage: 1000-20, UNK
  5. TRILIPIX [Concomitant]
     Dosage: 135 MG, UNK
  6. FOLIC ACID [Concomitant]
     Dosage: 1 MG, UNK
  7. LOVAZA [Concomitant]
     Dosage: 1 GM, UNK
  8. ANTIOXIDANT                        /02147801/ [Concomitant]
     Dosage: UNK
  9. MULTIVITAMINS, PLAIN [Concomitant]
     Dosage: UNK
  10. LOSARTAN POTASSIUM [Concomitant]
     Dosage: 100 MG, UNK
  11. CALCIUM [Concomitant]
     Dosage: 500 UNK, UNK
  12. VITAMIN C                          /00008001/ [Concomitant]
     Dosage: 500 UNK, UNK
  13. ASPIRIN [Concomitant]
     Dosage: 81 MG, UNK

REACTIONS (1)
  - Influenza [Unknown]
